FAERS Safety Report 7485050-3 (Version None)
Quarter: 2011Q2

REPORT INFORMATION
  Report Type: 
  Country: None (occurrence: None)
  Receive Date: 20110517
  Receipt Date: 20101108
  Transmission Date: 20111010
  Serious: No
  Sender: FDA-Public Use
  Company Number: US-BAYER-2010-001473

PATIENT
  Age: 69 Year
  Sex: Female
  Weight: 58 kg

DRUGS (3)
  1. LEVOTHYROXINE SODIUM [Concomitant]
     Dosage: DAILY DOSE 25 MG
  2. PRAVASTATIN [Concomitant]
     Dosage: DAILY DOSE 40 MG
  3. ALEVE (CAPLET) [Suspect]
     Dosage: 220 MG, UNK
     Route: 048

REACTIONS (2)
  - JOINT SWELLING [None]
  - ARTHRALGIA [None]
